FAERS Safety Report 4633593-X (Version None)
Quarter: 2005Q2

REPORT INFORMATION
  Report Type: 
  Country: None (occurrence: None)
  Receive Date: 20050412
  Receipt Date: 20050412
  Transmission Date: 20051028
  Serious: Yes (Hospitalization)
  Sender: FDA-Public Use
  Company Number: None

PATIENT
  Age: 62 Year
  Sex: Male
  Weight: 84.4 kg

DRUGS (13)
  1. INSULIN 70/30 NPH/REG [Suspect]
  2. GABAPENTIN [Concomitant]
  3. ASPIRIN [Concomitant]
  4. SPIRONOLACTONE [Concomitant]
  5. FUROSEMIDE [Concomitant]
  6. IPRATROPIUM/ALBUTEROL INHALER [Concomitant]
  7. LUBRIDERM LOTION [Concomitant]
  8. METEROLOL SUCCINATE [Concomitant]
  9. LISINOPRIL [Concomitant]
  10. SIMVASTATIN [Concomitant]
  11. INSULIN HUMAN REGULAR [Concomitant]
  12. LOPERAMIDE HCL [Concomitant]
  13. TEMAZEPAM [Concomitant]

REACTIONS (2)
  - CONVULSION [None]
  - HYPOGLYCAEMIA [None]
